FAERS Safety Report 11716705 (Version 2)
Quarter: 2015Q4

REPORT INFORMATION
  Report Type: Spontaneous
  Country: US (occurrence: US)
  Receive Date: 20151104
  Receipt Date: 20151110
  Transmission Date: 20160304
  Serious: No
  Sender: FDA-Public Use
  Company Number: US-ELI_LILLY_AND_COMPANY-US201105007169

PATIENT
  Age: 65 Year
  Sex: Female

DRUGS (3)
  1. FORTEO [Suspect]
     Active Substance: TERIPARATIDE
     Dosage: 20 UG, QD
     Route: 065
  2. FORTEO [Suspect]
     Active Substance: TERIPARATIDE
     Indication: OSTEOPOROSIS
     Dosage: 20 UG, QD
     Route: 065
  3. FORTEO [Suspect]
     Active Substance: TERIPARATIDE
     Dosage: 20 UG, QD
     Route: 065

REACTIONS (39)
  - Weight increased [Unknown]
  - Dyspepsia [Recovering/Resolving]
  - Confusional state [Recovering/Resolving]
  - Pain in extremity [Unknown]
  - Feeling abnormal [Unknown]
  - Headache [Unknown]
  - Flatulence [Recovering/Resolving]
  - Hyperphagia [Recovering/Resolving]
  - Injection site pain [Recovering/Resolving]
  - Presyncope [Recovering/Resolving]
  - Ageusia [Recovering/Resolving]
  - Frequent bowel movements [Recovering/Resolving]
  - Weight decreased [Recovering/Resolving]
  - Fatigue [Recovering/Resolving]
  - Bone pain [Recovering/Resolving]
  - Injection site bruising [Unknown]
  - Neck pain [Unknown]
  - Abdominal distension [Recovering/Resolving]
  - Tinnitus [Recovering/Resolving]
  - Hiccups [Recovering/Resolving]
  - Urinary retention [Recovering/Resolving]
  - Joint swelling [Unknown]
  - Balance disorder [Unknown]
  - Arthralgia [Recovering/Resolving]
  - Constipation [Unknown]
  - Hyperhidrosis [Recovering/Resolving]
  - Balance disorder [Recovering/Resolving]
  - Urine abnormality [Recovering/Resolving]
  - Eructation [Recovering/Resolving]
  - Waist circumference increased [Unknown]
  - Malaise [Recovering/Resolving]
  - Paraesthesia [Recovering/Resolving]
  - Nasopharyngitis [Recovering/Resolving]
  - Back disorder [Unknown]
  - Peripheral swelling [Unknown]
  - Hyperhidrosis [Unknown]
  - Nervousness [Recovering/Resolving]
  - Breast enlargement [Unknown]
  - Dizziness [Recovering/Resolving]

NARRATIVE: CASE EVENT DATE: 201203
